FAERS Safety Report 11890802 (Version 1)
Quarter: 2016Q1

REPORT INFORMATION
  Report Type: Spontaneous
  Country: GB (occurrence: GB)
  Receive Date: 20160106
  Receipt Date: 20160106
  Transmission Date: 20160526
  Serious: Yes (Other)
  Sender: FDA-Public Use
  Company Number: GB-CIPLA LTD.-2015GB09967

PATIENT

DRUGS (2)
  1. CARBOPLATIN. [Suspect]
     Active Substance: CARBOPLATIN
     Indication: TRANSITIONAL CELL CARCINOMA
     Dosage: AUC 4.5 ON DAY 1 OVER 1 HOUR I.V., EVERY 21 DAYS
     Route: 042
  2. VINFLUNINE [Suspect]
     Active Substance: VINFLUNINE
     Indication: TRANSITIONAL CELL CARCINOMA
     Dosage: 250 OR 280MG/M2 AS A 20 MINUTE I.V. INFUSION ON DAY 1, EVERY 21 DAYS

REACTIONS (2)
  - Musculoskeletal disorder [Unknown]
  - Pain [Unknown]
